FAERS Safety Report 5011554-9 (Version None)
Quarter: 2006Q2

REPORT INFORMATION
  Report Type: 
  Country: None (occurrence: None)
  Receive Date: 20060524
  Receipt Date: 20060508
  Transmission Date: 20061013
  Serious: Yes (Other)
  Sender: FDA-Public Use
  Company Number: 2006BI007151

PATIENT
  Age: 45 Year
  Sex: Female
  Weight: 88 kg

DRUGS (7)
  1. NATALIZUMAB (NATALIZUMAB)  (300 MG) [Suspect]
     Indication: CROHN'S DISEASE
     Dosage: 300 MG; QM; IV
     Route: 042
     Dates: start: 20031125, end: 20040707
  2. THIOGUANINE [Concomitant]
  3. PANTOPRAZOLE SODIUM [Concomitant]
  4. TRITAZIDE [Concomitant]
  5. NORVASC [Concomitant]
  6. NORMOXIN [Concomitant]
  7. BUDESONID [Concomitant]

REACTIONS (1)
  - CHRONIC LYMPHOCYTIC LEUKAEMIA [None]
